FAERS Safety Report 5700872-4 (Version None)
Quarter: 2008Q2

REPORT INFORMATION
  Report Type: 
  Country: None (occurrence: None)
  Receive Date: 20080410
  Receipt Date: 20080327
  Transmission Date: 20081010
  Serious: Yes (Hospitalization, Congenital Anomaly)
  Sender: FDA-Public Use
  Company Number: A0682501A

PATIENT
  Sex: Female

DRUGS (7)
  1. PAXIL [Suspect]
     Indication: DEPRESSION
     Dosage: 20MG PER DAY
     Dates: start: 19991220, end: 20040623
  2. VITAMIN TAB [Concomitant]
  3. TYLENOL (CAPLET) [Concomitant]
     Indication: HEADACHE
  4. PROZAC [Concomitant]
     Dosage: 10MG PER DAY
     Dates: start: 20000625, end: 20000904
  5. AMPICILLIN [Concomitant]
     Dates: start: 20000702
  6. AMOXICILLIN [Concomitant]
     Dates: start: 20000727
  7. DENAVIR CREAM [Concomitant]
     Dates: start: 19991017, end: 20000820

REACTIONS (29)
  - AORTIC VALVE DISEASE [None]
  - ARRHYTHMIA [None]
  - ATRIAL SEPTAL DEFECT [None]
  - ATTENTION DEFICIT/HYPERACTIVITY DISORDER [None]
  - CARDIAC MURMUR [None]
  - CARDIOMEGALY [None]
  - CONGENITAL AORTIC STENOSIS [None]
  - CYANOSIS [None]
  - CYTOGENETIC ABNORMALITY [None]
  - DEVELOPMENTAL DELAY [None]
  - DRUG EXPOSURE DURING PREGNANCY [None]
  - DYSPNOEA [None]
  - ELECTROCARDIOGRAM QRS COMPLEX PROLONGED [None]
  - GALLOP RHYTHM PRESENT [None]
  - GROWTH RETARDATION [None]
  - HEART DISEASE CONGENITAL [None]
  - LEARNING DISORDER [None]
  - MITRAL VALVE INCOMPETENCE [None]
  - OXYGEN SATURATION DECREASED [None]
  - PATENT DUCTUS ARTERIOSUS [None]
  - PULMONARY VALVE STENOSIS CONGENITAL [None]
  - QRS AXIS ABNORMAL [None]
  - RESPIRATORY FAILURE [None]
  - RIGHT ATRIAL HYPERTROPHY [None]
  - RIGHT VENTRICULAR HYPERTROPHY [None]
  - SPEECH DISORDER DEVELOPMENTAL [None]
  - TACHYPNOEA [None]
  - TRICUSPID VALVE INCOMPETENCE [None]
  - VENTRICULAR SEPTAL DEFECT [None]
